FAERS Safety Report 4286787-X (Version None)
Quarter: 2004Q1

REPORT INFORMATION
  Report Type: 
  Country: None (occurrence: None)
  Receive Date: 20040204
  Receipt Date: 20040127
  Transmission Date: 20041129
  Serious: Yes (Other)
  Sender: FDA-Public Use
  Company Number: 200411196GDDC

PATIENT
  Age: 28 Year
  Sex: Female

DRUGS (2)
  1. METRONIDAZOLE [Suspect]
     Indication: INFECTION
     Dosage: 500 MG QD PO
     Route: 048
     Dates: start: 20040112
  2. ERYTHROMYCIN [Suspect]
     Indication: INFECTION
     Dosage: 500 MG QD PO
     Route: 048
     Dates: start: 20040112

REACTIONS (2)
  - CHEST DISCOMFORT [None]
  - DYSPNOEA [None]
